FAERS Safety Report 8916910 (Version 4)
Quarter: 2013Q1

REPORT INFORMATION
  Report Type: Spontaneous
  Country: US (occurrence: US)
  Receive Date: 20121120
  Receipt Date: 20130204
  Transmission Date: 20140127
  Serious: Yes (Other)
  Sender: FDA-Public Use
  Company Number: US-PFIZER INC-2012286684

PATIENT
  Age: 76 Year
  Sex: Female
  Weight: 43.08 kg

DRUGS (14)
  1. ERYTHROMYCIN [Concomitant]
     Indication: BEZOAR
     Dosage: 250 MG, 2X/DAY (1/2 TAB)
  2. PROCHLORPERAZINE [Concomitant]
     Indication: NAUSEA
     Dosage: AS NEEDED, EVERY 6 HRS
  3. LISINOPRIL [Concomitant]
     Indication: HYPERTENSION
     Dosage: 20 MG, 1X/DAY, DAILY
  4. LISINOPRIL [Concomitant]
     Dosage: 20 MG, 2X/DAY
  5. MORPHINE [Concomitant]
     Indication: BREAKTHROUGH PAIN
     Dosage: 15 MG, AS NEEDED, EVERY 6HRS
  6. FENTANYL [Concomitant]
     Dosage: 25 UG, EVERY 72 HRS
  7. FENTANYL [Concomitant]
     Dosage: 12.5 MG, PATCH
  8. AMBIEN [Concomitant]
     Indication: SLEEP DISORDER
     Dosage: HS
  9. ACET/BEZOAR/CAF/CHLORP/METH HCL-DL/RIB/TH DISULFIDE/TIP HIB [Concomitant]
  10. NEXIUM [Concomitant]
  11. SUTENT [Suspect]
     Indication: METASTATIC RENAL CELL CARCINOMA
     Dosage: 37.5 MG, UNK
     Dates: start: 2007
  12. SUTENT [Suspect]
     Dosage: 25 MG, UNK
     Dates: start: 201209
  13. SUTENT [Suspect]
     Dosage: 37.5 MG, UNK
     Dates: start: 2012
  14. CREON [Concomitant]
     Indication: PANCREATIC DISORDER
     Dosage: 3 TABS QID

REACTIONS (12)
  - Haematochezia [Unknown]
  - Nausea [Unknown]
  - Vomiting [Unknown]
  - Dehydration [Unknown]
  - Blood glucose abnormal [Unknown]
  - Oedema peripheral [Unknown]
  - Fatigue [Unknown]
  - Abdominal pain upper [Unknown]
  - Hepatic enzyme abnormal [Unknown]
  - Chromaturia [Unknown]
  - Weight increased [Unknown]
  - Cough [Unknown]
